FAERS Safety Report 8607702 (Version 2)
Quarter: 2012Q4

REPORT INFORMATION
  Report Type: 
  Country: US (occurrence: US)
  Receive Date: 20120611
  Receipt Date: 20121109
  Transmission Date: 20130627
  Serious: Yes (Hospitalization, Other)
  Sender: FDA-Public Use
  Company Number: US-BAYER-2012-056737

PATIENT
  Age: 23 Year
  Sex: Female
  Weight: 72.56 kg

DRUGS (20)
  1. YAZ [Suspect]
     Indication: CONTRACEPTION
     Dosage: UNK
     Route: 048
     Dates: start: 200505, end: 201011
  2. YAZ [Suspect]
     Indication: PREMENSTRUAL DYSPHORIC DISORDER
     Dosage: UNK
     Dates: start: 200710, end: 201006
  3. YAZ [Suspect]
     Indication: CONTRACEPTION
     Dosage: UNK
     Dates: start: 201009, end: 201011
  4. YASMIN [Suspect]
     Indication: CONTRACEPTION
     Dosage: UNK
     Route: 048
     Dates: start: 200505, end: 200509
  5. YASMIN [Suspect]
     Indication: PREMENSTRUAL DYSPHORIC DISORDER
     Dosage: UNK
     Dates: start: 200505, end: 201011
  6. GIANVI [Suspect]
     Dosage: UNK
     Route: 048
     Dates: start: 201007, end: 201009
  7. GIANVI [Suspect]
     Dosage: UNK
     Dates: start: 201012, end: 201104
  8. LORTAB [Concomitant]
     Dosage: UNK
     Dates: start: 2008
  9. PERCOCET [Concomitant]
     Dosage: 7.5-325 mg
     Dates: start: 2008
  10. PROZAC [Concomitant]
     Dosage: 40 mg, UNK
     Dates: start: 2008
  11. XANAX [Concomitant]
     Dosage: 0.25 mg, UNK
     Dates: start: 2008
  12. MULTIVITAMIN [Concomitant]
     Dosage: 1 daily
     Dates: start: 2009
  13. GABAPENTIN [Concomitant]
     Dosage: 300 mg, UNK
     Dates: start: 20100430
  14. LIDODERM [Concomitant]
     Dosage: 5 %, UNK
     Dates: start: 20100617
  15. TIZANIDINE [Concomitant]
     Dosage: 4 mg, UNK
     Route: 048
     Dates: start: 20100712, end: 20100813
  16. HYOSCYAMINE [Concomitant]
     Indication: STOMACH PAIN
     Dosage: 0.125 mg, daily
  17. PROMETHAZINE [Concomitant]
     Indication: NAUSEA
     Dosage: 50 mg, as needed
     Dates: start: 20100811
  18. PROMETHAZINE [Concomitant]
     Indication: VOMITING
  19. VITAMIN B COMPLEX [Concomitant]
     Dosage: UNK
     Route: 048
     Dates: start: 20100813
  20. PROTON PUMP INHIBITORS [Concomitant]

REACTIONS (12)
  - Gallbladder disorder [None]
  - Cholecystitis chronic [None]
  - Pain [None]
  - Injury [None]
  - Emotional distress [None]
  - Nervousness [None]
  - Fear of death [None]
  - Depression [None]
  - Nausea [None]
  - Vomiting [None]
  - Abdominal pain upper [None]
  - Discomfort [None]
